FAERS Safety Report 8348986-7 (Version None)
Quarter: 2012Q2

REPORT INFORMATION
  Report Type: 
  Country: None (occurrence: None)
  Receive Date: 20120508
  Receipt Date: 20120425
  Transmission Date: 20120825
  Serious: Yes (Disabling)
  Sender: FDA-Public Use
  Company Number: AUR-APL-2012-01144

PATIENT
  Age: 47 Year
  Sex: Male
  Weight: 96.9 kg

DRUGS (17)
  1. ASPIRIN [Concomitant]
  2. NITROGLYCERIN [Concomitant]
  3. LAXIDO(MACROGOL 3350) [Concomitant]
  4. AMLODIPINE [Suspect]
     Indication: PRODUCT USED FOR UNKNOWN INDICATION
     Dosage: 5 MG (5 MG, 1 IN 1 D), UNKNOWN
     Dates: start: 20120117, end: 20120131
  5. CINCHOCAINE (CINCHOCAINE) [Concomitant]
  6. SENNA-MINT WAF [Concomitant]
  7. VALPROATE SODIUM [Concomitant]
  8. GLYCEROL 2.6% [Concomitant]
  9. BETAMETHASONE VALERATE [Concomitant]
  10. OMEPRAZOLE [Concomitant]
  11. BENDROFLUMETHIAZIDE(BENDROFLUMETHIAZIDE) [Concomitant]
  12. GLYCEROL 2.6% [Concomitant]
  13. OTOMIZE(OTOMIZE) [Concomitant]
  14. BISOPROLOL FUMARATE [Concomitant]
  15. ACETAMINOPHEN [Concomitant]
  16. PROCTOSEDYL(PROCTOSEDYL [Concomitant]
  17. RAMIPRIL [Concomitant]

REACTIONS (1)
  - GRAND MAL CONVULSION [None]
